FAERS Safety Report 25022267 (Version 1)
Quarter: 2025Q1

REPORT INFORMATION
  Report Type: Spontaneous
  Country: US (occurrence: US)
  Receive Date: 20250228
  Receipt Date: 20250228
  Transmission Date: 20250408
  Serious: Yes (Other)
  Sender: AMGEN
  Company Number: US-AMGEN-USASP2025037191

PATIENT

DRUGS (1)
  1. TEPROTUMUMAB [Suspect]
     Active Substance: TEPROTUMUMAB
     Indication: Endocrine ophthalmopathy
     Route: 040

REACTIONS (7)
  - Deafness [Unknown]
  - Dizziness [Unknown]
  - Vertigo [Unknown]
  - Eustachian tube patulous [Unknown]
  - Tinnitus [Unknown]
  - Eustachian tube dysfunction [Unknown]
  - Quality of life decreased [Unknown]
